FAERS Safety Report 6432051-X (Version None)
Quarter: 2009Q4

REPORT INFORMATION
  Report Type: 
  Country: None (occurrence: None)
  Receive Date: 20091109
  Receipt Date: 20091026
  Transmission Date: 20100525
  Serious: Yes (Other)
  Sender: FDA-Public Use
  Company Number: TH-ROCHE-664681

PATIENT
  Age: 71 Year
  Sex: Female

DRUGS (3)
  1. BONIVA [Suspect]
     Indication: OSTEOPOROSIS
     Route: 048
     Dates: start: 20090914, end: 20090914
  2. HERBESSER [Suspect]
     Indication: HYPERTENSION
     Dosage: DOSE, FREQUENCY UNSPECIFIED.
     Route: 048
     Dates: start: 20090914
  3. PARIET [Suspect]
     Indication: DRUG USE FOR UNKNOWN INDICATION
     Dosage: DOSE, FREQUENCY UNSPECIFIED.
     Route: 048
     Dates: start: 20090918

REACTIONS (3)
  - ABDOMINAL PAIN [None]
  - DIARRHOEA [None]
  - ERYTHEMA MULTIFORME [None]
